FAERS Safety Report 6588730-7 (Version None)
Quarter: 2010Q1

REPORT INFORMATION
  Report Type: 
  Country: None (occurrence: None)
  Receive Date: 20100218
  Receipt Date: 20100205
  Transmission Date: 20100710
  Serious: Yes (Hospitalization, Other)
  Sender: FDA-Public Use
  Company Number: PHEH2007US06550

PATIENT
  Sex: Female

DRUGS (18)
  1. ZELNORM [Suspect]
     Dosage: 6 MG, BID
     Dates: start: 20060522
  2. PREMARIN [Concomitant]
  3. NEXIUM [Concomitant]
  4. PROPRANOLOL HYDROCHLORIDE [Concomitant]
  5. TRIAMTERENE AND HYDROCHLOROTHIAZID ^HARRIS^ [Concomitant]
  6. BENEFIBER [Concomitant]
  7. AGGRENOX [Concomitant]
  8. MECLIZINE [Concomitant]
  9. CYCLOBENZAPRINE [Concomitant]
  10. DYAZIDE [Concomitant]
  11. DEMEROL [Concomitant]
  12. PROMETHAZINE [Concomitant]
  13. PROTONIX [Concomitant]
  14. POTASSIUM CHLORIDE [Concomitant]
  15. SPIRONOLACTONE [Concomitant]
  16. METOCLOPRAMIDE HYDROCHLORIDE [Concomitant]
  17. ROCEPHIN [Concomitant]
  18. LODRANE [Concomitant]

REACTIONS (14)
  - ABDOMINAL PAIN UPPER [None]
  - BLOOD PRESSURE ABNORMAL [None]
  - CEREBROVASCULAR ACCIDENT [None]
  - DIARRHOEA [None]
  - GASTROINTESTINAL SURGERY [None]
  - HEADACHE [None]
  - HEART RATE ABNORMAL [None]
  - NAUSEA [None]
  - PANCREATIC PSEUDOCYST [None]
  - PANCREATITIS ACUTE [None]
  - PLANTAR FASCIITIS [None]
  - PNEUMONIA [None]
  - VERTIGO [None]
  - VOMITING [None]
